FAERS Safety Report 7969487-1 (Version None)
Quarter: 2011Q4

REPORT INFORMATION
  Report Type: 
  Country: None (occurrence: None)
  Receive Date: 20111212
  Receipt Date: 20111201
  Transmission Date: 20120403
  Serious: Yes (Hospitalization)
  Sender: FDA-Public Use
  Company Number: US-BIOGENIDEC-2011BI045754

PATIENT
  Age: 60 Year
  Sex: Female

DRUGS (4)
  1. MEDICATION (NOS) [Concomitant]
     Indication: HYPERTENSION
  2. MEDICATION (NOS) [Concomitant]
     Indication: GASTROOESOPHAGEAL REFLUX DISEASE
  3. AVONEX [Suspect]
     Indication: MULTIPLE SCLEROSIS
     Route: 030
  4. AVONEX [Suspect]
     Route: 030
     Dates: start: 20010409

REACTIONS (3)
  - CONVULSION [None]
  - CEREBROVASCULAR ACCIDENT [None]
  - PARAESTHESIA [None]
